FAERS Safety Report 4919705-9 (Version None)
Quarter: 2006Q1

REPORT INFORMATION
  Report Type: 
  Country: None (occurrence: None)
  Receive Date: 20060221
  Receipt Date: 20060208
  Transmission Date: 20060701
  Serious: Yes (Hospitalization)
  Sender: FDA-Public Use
  Company Number: 2006P1000075

PATIENT
  Age: 44 Year
  Weight: 83 kg

DRUGS (9)
  1. RETEPLASE (RETEPLASE) [Suspect]
     Indication: ACUTE MYOCARDIAL INFARCTION
     Dosage: 5 IU;1X;IV
     Route: 042
     Dates: start: 20040803, end: 20040803
  2. RETEPLASE (RETEPLASE) [Suspect]
     Indication: ACUTE MYOCARDIAL INFARCTION
     Dosage: 5 IU;1X;IV
     Route: 042
     Dates: start: 20040803, end: 20040803
  3. ABCIXIMAB (ABCIXIMAB) [Suspect]
     Indication: ACUTE MYOCARDIAL INFARCTION
     Dosage: 10 ML;1X;IV; 04.0 ML;1X;IV
     Route: 042
     Dates: start: 20040803, end: 20040803
  4. ABCIXIMAB (ABCIXIMAB) [Suspect]
     Indication: ACUTE MYOCARDIAL INFARCTION
     Dosage: 10 ML;1X;IV; 04.0 ML;1X;IV
     Route: 042
     Dates: start: 20040803, end: 20040803
  5. HEPARIN [Concomitant]
  6. ASPIRIN [Concomitant]
  7. BETA BLOCKING AGENTS [Concomitant]
  8. ACE INHIBITOR NOS [Concomitant]
  9. CHOLESTEROL- AND TRIGLYCERIDE REDUCERS [Concomitant]

REACTIONS (4)
  - BLOOD CHOLESTEROL INCREASED [None]
  - BLOOD TRIGLYCERIDES INCREASED [None]
  - CARDIAC FAILURE CONGESTIVE [None]
  - MYOCARDIAL ISCHAEMIA [None]
